FAERS Safety Report 23474991 (Version 1)
Quarter: 2024Q1

REPORT INFORMATION
  Report Type: Report from Study
  Country: US (occurrence: US)
  Receive Date: 20240204
  Receipt Date: 20240204
  Transmission Date: 20240409
  Serious: Yes (Other)
  Sender: FDA-Public Use
  Company Number: US-EXELIXIS-CABO-23068360

PATIENT
  Sex: Male

DRUGS (13)
  1. CABOMETYX [Suspect]
     Active Substance: CABOZANTINIB S-MALATE
     Indication: Lip and/or oral cavity cancer
     Dosage: 40 MG, QD
     Dates: start: 20230826
  2. CABOMETYX [Suspect]
     Active Substance: CABOZANTINIB S-MALATE
     Indication: Squamous cell carcinoma
  3. BRILINTA [Concomitant]
     Active Substance: TICAGRELOR
  4. DOFETILIDE [Concomitant]
     Active Substance: DOFETILIDE
  5. ELIQUIS [Concomitant]
     Active Substance: APIXABAN
  6. LYRICA [Concomitant]
     Active Substance: PREGABALIN
  7. METHADONE [Concomitant]
     Active Substance: METHADONE HYDROCHLORIDE
  8. OXYCODONE [Concomitant]
     Active Substance: OXYCODONE\OXYCODONE HYDROCHLORIDE
  9. MELATONIN [Concomitant]
     Active Substance: MELATONIN
  10. SENNA [Concomitant]
     Active Substance: SENNA LEAF\SENNOSIDES\SENNOSIDES A AND B
  11. LACTULOSE [Concomitant]
     Active Substance: LACTULOSE
  12. AMOXICILLIN [Concomitant]
     Active Substance: AMOXICILLIN
  13. CANNABIDIOL\HERBALS [Concomitant]
     Active Substance: CANNABIDIOL\HERBALS

REACTIONS (4)
  - Malignant neoplasm progression [Unknown]
  - Abscess [Unknown]
  - Peripheral swelling [Unknown]
  - Off label use [Unknown]
